FAERS Safety Report 16314006 (Version 1)
Quarter: 2019Q2

REPORT INFORMATION
  Report Type: Spontaneous
  Country: US (occurrence: US)
  Receive Date: 20190514
  Receipt Date: 20190514
  Transmission Date: 20190711
  Serious: Yes (Other)
  Sender: FDA-Public Use
  Company Number: None

PATIENT
  Age: 53 Year
  Sex: Female

DRUGS (3)
  1. DIVIGEL GEL 1MG/GM [Concomitant]
     Dates: start: 20181219
  2. HUMIRA [Suspect]
     Active Substance: ADALIMUMAB
     Indication: RHEUMATOID ARTHRITIS
     Dosage: ?          OTHER FREQUENCY:EVERY OTHER WEEK;?
     Route: 058
  3. PROGESTERONE CAPSULE 100MG [Concomitant]
     Dates: start: 20181219

REACTIONS (3)
  - Hand fracture [None]
  - Soft tissue injury [None]
  - Therapy cessation [None]

NARRATIVE: CASE EVENT DATE: 20190513
